FAERS Safety Report 5139107-2 (Version None)
Quarter: 2006Q4

REPORT INFORMATION
  Report Type: 
  Country: None (occurrence: None)
  Receive Date: 20061030
  Receipt Date: 20060621
  Transmission Date: 20070319
  Serious: No
  Sender: FDA-Public Use
  Company Number: US-GLAXOSMITHKLINE-A0609882A

PATIENT
  Age: 65 Year
  Sex: Female

DRUGS (7)
  1. ADVAIR HFA [Suspect]
     Indication: ASTHMA
     Dosage: 2BLS TWICE PER DAY
     Route: 055
     Dates: start: 20051213
  2. ANTI-DIARRHEAL [Concomitant]
  3. PRAVACHOL [Concomitant]
  4. TYLENOL [Concomitant]
  5. ANTACID TAB [Concomitant]
  6. XALATAN [Concomitant]
  7. PAXIL [Concomitant]

REACTIONS (2)
  - BURNING SENSATION [None]
  - PHARMACEUTICAL PRODUCT COMPLAINT [None]
